FAERS Safety Report 7549141-0 (Version None)
Quarter: 2011Q2

REPORT INFORMATION
  Report Type: 
  Country: None (occurrence: None)
  Receive Date: 20110615
  Receipt Date: 20110601
  Transmission Date: 20111010
  Serious: Yes (Other)
  Sender: FDA-Public Use
  Company Number: PHHY2011AU48102

PATIENT

DRUGS (1)
  1. ZOLEDRONIC ACID [Suspect]

REACTIONS (1)
  - DERMATITIS BULLOUS [None]
